FAERS Safety Report 11855483 (Version 3)
Quarter: 2016Q1

REPORT INFORMATION
  Report Type: Spontaneous
  Country: US (occurrence: US)
  Receive Date: 20151221
  Receipt Date: 20160201
  Transmission Date: 20160526
  Serious: No
  Sender: FDA-Public Use
  Company Number: US-ASTRAZENECA-2015SF24696

PATIENT
  Sex: Male
  Weight: 72.6 kg

DRUGS (6)
  1. ATENOLOL. [Suspect]
     Active Substance: ATENOLOL
     Indication: CARDIAC DISORDER
     Dosage: 25 MG ONE QUARTER OF A PILL DAILY
     Route: 048
  2. AMLODIPINE [Concomitant]
     Active Substance: AMLODIPINE BESYLATE
     Indication: HYPERTENSION
     Route: 048
  3. VITAMINS NOS [Concomitant]
     Active Substance: VITAMINS
  4. SIMVASTATIN. [Concomitant]
     Active Substance: SIMVASTATIN
     Indication: BLOOD CHOLESTEROL ABNORMAL
     Route: 048
  5. SYMBICORT [Suspect]
     Active Substance: BUDESONIDE\FORMOTEROL FUMARATE DIHYDRATE
     Indication: ASTHMA
     Dosage: 80/4.5, 2 PUFFS TWICE A DAY
     Route: 055
     Dates: start: 201511
  6. SYMBICORT [Suspect]
     Active Substance: BUDESONIDE\FORMOTEROL FUMARATE DIHYDRATE
     Indication: ASTHMA
     Dosage: SOMETIMES HE NEEDS TO TAKE 3 PUFFS INSTEAD OF 2, TWO TIMES A DAY
     Route: 055

REACTIONS (7)
  - Memory impairment [Unknown]
  - Dyspnoea [Unknown]
  - Visual impairment [Unknown]
  - Sleep disorder [Unknown]
  - Intentional product misuse [Unknown]
  - Device malfunction [Unknown]
  - Drug ineffective [Unknown]
